FAERS Safety Report 7457909-4 (Version None)
Quarter: 2011Q2

REPORT INFORMATION
  Report Type: 
  Country: None (occurrence: None)
  Receive Date: 20110504
  Receipt Date: 20110502
  Transmission Date: 20111010
  Serious: Yes (Other)
  Sender: FDA-Public Use
  Company Number: US-PFIZER INC-2011094501

PATIENT
  Sex: Female
  Weight: 55.329 kg

DRUGS (2)
  1. LEVOTHYROXINE [Concomitant]
     Indication: AUTOIMMUNE THYROIDITIS
     Dosage: UNK
     Dates: start: 20050101
  2. GEODON [Suspect]
     Indication: MOOD ALTERED
     Dosage: 20 MG, 2X/DAY
     Route: 048
     Dates: start: 20110422, end: 20110427

REACTIONS (6)
  - FEELING ABNORMAL [None]
  - MYOCARDIAL INFARCTION [None]
  - NAUSEA [None]
  - INSOMNIA [None]
  - TREMOR [None]
  - PALPITATIONS [None]
